FAERS Safety Report 7592658-3 (Version None)
Quarter: 2011Q3

REPORT INFORMATION
  Report Type: 
  Country: None (occurrence: None)
  Receive Date: 20110706
  Receipt Date: 20110621
  Transmission Date: 20111222
  Serious: Yes (Disabling)
  Sender: FDA-Public Use
  Company Number: US-VALEANT-2011VX001809

PATIENT
  Age: 96 Year
  Sex: Female

DRUGS (4)
  1. TIMOPTIC [Suspect]
     Indication: GLAUCOMA
     Route: 047
     Dates: end: 20110617
  2. AZOPT [Concomitant]
     Route: 065
  3. LUMIGAN [Concomitant]
     Route: 065
  4. ALPHAGAN P [Concomitant]
     Route: 065

REACTIONS (2)
  - BLINDNESS UNILATERAL [None]
  - BLINDNESS [None]
